FAERS Safety Report 17016048 (Version 2)
Quarter: 2019Q4

REPORT INFORMATION
  Report Type: Spontaneous
  Country: ID (occurrence: ID)
  Receive Date: 20191111
  Receipt Date: 20191114
  Transmission Date: 20200122
  Serious: Yes (Other)
  Sender: FDA-Public Use
  Company Number: NVSC2019ID028626

PATIENT
  Age: 41 Year
  Sex: Female

DRUGS (2)
  1. ALLOPURINOL. [Suspect]
     Active Substance: ALLOPURINOL
     Indication: HYPERTENSION
     Dosage: UNK UKN
     Route: 048
  2. CAPTOPRIL. [Interacting]
     Active Substance: CAPTOPRIL
     Indication: HYPERTENSION
     Dosage: UNK UKN
     Route: 065

REACTIONS (3)
  - Product use in unapproved indication [Unknown]
  - Drug interaction [Unknown]
  - Renal failure [Unknown]
